FAERS Safety Report 21260013 (Version 1)
Quarter: 2022Q3

REPORT INFORMATION
  Report Type: Spontaneous
  Country: US (occurrence: US)
  Receive Date: 20220826
  Receipt Date: 20220826
  Transmission Date: 20221027
  Serious: Yes (Life-Threatening, Hospitalization, Other)
  Sender: FDA-Public Use
  Company Number: US-drreddys-LIT/USA/22/0153657

PATIENT
  Age: 23 Year
  Sex: Female

DRUGS (7)
  1. DIPHENHYDRAMINE HYDROCHLORIDE [Suspect]
     Active Substance: DIPHENHYDRAMINE HYDROCHLORIDE
     Indication: Anaphylactic reaction
     Dosage: AT HOME
  2. DIPHENHYDRAMINE HYDROCHLORIDE [Suspect]
     Active Substance: DIPHENHYDRAMINE HYDROCHLORIDE
     Route: 042
  3. DIPHENHYDRAMINE HYDROCHLORIDE [Suspect]
     Active Substance: DIPHENHYDRAMINE HYDROCHLORIDE
     Dosage: ADDITIONAL DOSES OF TREATMENT
  4. METHYLPREDNISOLONE [Suspect]
     Active Substance: METHYLPREDNISOLONE
     Indication: Anaphylactic reaction
     Route: 042
  5. EPINEPHRINE [Suspect]
     Active Substance: EPINEPHRINE
     Indication: Anaphylactic reaction
     Route: 030
  6. EPINEPHRINE [Suspect]
     Active Substance: EPINEPHRINE
     Dosage: ADDITIONAL DOSES OF TREATMENT
  7. PREDNISONE [Concomitant]
     Active Substance: PREDNISONE
     Indication: Anaphylactic reaction

REACTIONS (3)
  - Drug ineffective [Unknown]
  - Condition aggravated [Recovering/Resolving]
  - Exposure during pregnancy [Unknown]
